FAERS Safety Report 4780625-4 (Version None)
Quarter: 2005Q3

REPORT INFORMATION
  Report Type: 
  Country: None (occurrence: None)
  Receive Date: 20050926
  Receipt Date: 20050913
  Transmission Date: 20060218
  Serious: Yes (Other)
  Sender: FDA-Public Use
  Company Number: 2005128402

PATIENT
  Age: 60 Year
  Sex: Female

DRUGS (10)
  1. DETROL LA [Suspect]
     Indication: INCONTINENCE
     Dosage: 4 MG (4 MG, 1 IN 1 D), ORAL
     Route: 048
     Dates: start: 20040101
  2. DETROL LA [Suspect]
     Indication: MICTURITION URGENCY
     Dosage: 4 MG (4 MG, 1 IN 1 D), ORAL
     Route: 048
     Dates: start: 20040101
  3. MOBIC [Concomitant]
  4. CELEBREX [Concomitant]
  5. ULTRACET [Concomitant]
  6. VYTORIN [Concomitant]
  7. ACETYLSALCYLIC ACID (ACETYLSALICYLIC ACID) [Concomitant]
  8. GLUCOSAMINE W/CHONDROITIN SULFATES (ASCORBIC ACID, CHONDROTIN SULFATE, [Concomitant]
  9. FLEXERIL [Concomitant]
  10. MULTIVITAMIN [Concomitant]

REACTIONS (6)
  - CALCINOSIS [None]
  - CYSTITIS [None]
  - DRUG DOSE OMISSION [None]
  - DRUG EFFECT INCREASED [None]
  - PATHOLOGICAL FRACTURE [None]
  - RIB FRACTURE [None]
